FAERS Safety Report 13579956 (Version 1)
Quarter: 2017Q2

REPORT INFORMATION
  Report Type: Report from Study
  Country: AR (occurrence: AR)
  Receive Date: 20170525
  Receipt Date: 20170525
  Transmission Date: 20170830
  Serious: Yes (Other)
  Sender: FDA-Public Use
  Company Number: PHHY2017AR077094

PATIENT
  Sex: Female

DRUGS (1)
  1. TRILEPTAL [Suspect]
     Active Substance: OXCARBAZEPINE
     Indication: EPILEPSY
     Dosage: 1.5 DF (1350 MG), TID (ONE AND A HALF IN THE MORNING, IN THE AFTERNOON AND AT NIGHT)
     Route: 065

REACTIONS (2)
  - Wrong technique in product usage process [Unknown]
  - Petit mal epilepsy [Recovering/Resolving]
